FAERS Safety Report 14557903 (Version 3)
Quarter: 2018Q2

REPORT INFORMATION
  Report Type: Spontaneous
  Country: CO (occurrence: CO)
  Receive Date: 20180221
  Receipt Date: 20180425
  Transmission Date: 20180711
  Serious: Yes (Death, Other)
  Sender: FDA-Public Use
  Company Number: CO-JNJFOC-20180223142

PATIENT
  Sex: Male

DRUGS (2)
  1. ZYTIGA [Suspect]
     Active Substance: ABIRATERONE ACETATE
     Indication: PROSTATE CANCER
     Route: 048
     Dates: start: 20171030
  2. ZYTIGA [Suspect]
     Active Substance: ABIRATERONE ACETATE
     Indication: PROSTATE CANCER
     Dosage: STARTED 2 YEARS AND 4 MONTHS AGO
     Route: 048
     Dates: start: 201508

REACTIONS (4)
  - Death [Fatal]
  - Gastric varices [Unknown]
  - Hepatic cirrhosis [Unknown]
  - Product counterfeit [Unknown]
